FAERS Safety Report 11376924 (Version 2)
Quarter: 2015Q3

REPORT INFORMATION
  Report Type: Report from Study
  Country: US (occurrence: US)
  Receive Date: 20150813
  Receipt Date: 20150901
  Transmission Date: 20151125
  Serious: Yes (Hospitalization)
  Sender: FDA-Public Use
  Company Number: US-ACTELION-A-NJ2015-122418

PATIENT
  Age: 13 Year
  Sex: Female

DRUGS (4)
  1. ZAVESCA [Suspect]
     Active Substance: MIGLUSTAT
     Indication: GLIOBLASTOMA MULTIFORME
     Dosage: 70 MG, TID
     Route: 048
  2. DILANTIN [Concomitant]
     Active Substance: PHENYTOIN
     Dosage: 50 MG, TID
  3. OMEPRAZOLE. [Concomitant]
     Active Substance: OMEPRAZOLE
     Dosage: 20 MG, QD
  4. FOLIC ACID. [Concomitant]
     Active Substance: FOLIC ACID
     Dosage: 40 MG, TID

REACTIONS (3)
  - Irritability [Recovering/Resolving]
  - Drug dose omission [Unknown]
  - Musculoskeletal discomfort [Recovering/Resolving]
